FAERS Safety Report 12447577 (Version 1)
Quarter: 2016Q2

REPORT INFORMATION
  Report Type: Spontaneous
  Country: US (occurrence: None)
  Receive Date: 20160607
  Receipt Date: 20160607
  Transmission Date: 20160815
  Serious: Yes (Other)
  Sender: FDA-Public Use
  Company Number: None

PATIENT
  Age: 30 Year
  Sex: Female
  Weight: 65.32 kg

DRUGS (1)
  1. NORGESTIMATE [Suspect]
     Active Substance: NORGESTIMATE
     Dosage: 0.18MG 1 POQD ORAL
     Route: 048
     Dates: start: 201605

REACTIONS (3)
  - Headache [None]
  - Migraine [None]
  - Weight increased [None]

NARRATIVE: CASE EVENT DATE: 20160501
